FAERS Safety Report 24626207 (Version 2)
Quarter: 2024Q4

REPORT INFORMATION
  Report Type: Spontaneous
  Country: US (occurrence: US)
  Receive Date: 20241115
  Receipt Date: 20241118
  Transmission Date: 20250114
  Serious: No
  Sender: SANOFI AVENTIS
  Company Number: US-SANOFI-02288218

PATIENT
  Age: 81 Year
  Sex: Female

DRUGS (1)
  1. TOUJEO MAX [Suspect]
     Active Substance: INSULIN GLARGINE
     Indication: Type 2 diabetes mellitus
     Dosage: 24 IU, QD
     Dates: start: 2024

REACTIONS (2)
  - Blood glucose increased [Unknown]
  - Device occlusion [Unknown]

NARRATIVE: CASE EVENT DATE: 20241001
